FAERS Safety Report 11115542 (Version 2)
Quarter: 2015Q2

REPORT INFORMATION
  Report Type: Spontaneous
  Country: JP (occurrence: JP)
  Receive Date: 20150515
  Receipt Date: 20150526
  Transmission Date: 20150821
  Serious: Yes (Hospitalization, Disabling, Other)
  Sender: FDA-Public Use
  Company Number: JP-ASTRAZENECA-2015SE44411

PATIENT
  Age: 25355 Day
  Sex: Female
  Weight: 45 kg

DRUGS (7)
  1. METGLUCO [Concomitant]
     Active Substance: METFORMIN HYDROCHLORIDE
     Indication: TYPE 2 DIABETES MELLITUS
     Route: 048
     Dates: end: 20150505
  2. PITAVASTATIN CA [Concomitant]
     Indication: DYSLIPIDAEMIA
     Route: 048
  3. BENIDIPINE HYDROCHLORIDE [Concomitant]
     Active Substance: BENIDIPINE HYDROCHLORIDE
     Indication: HYPERTENSION
     Route: 048
  4. FORXIGA [Suspect]
     Active Substance: DAPAGLIFLOZIN
     Indication: TYPE 2 DIABETES MELLITUS
     Route: 048
     Dates: start: 201502, end: 20150505
  5. SEIBULE [Concomitant]
     Active Substance: MIGLITOL
     Route: 065
     Dates: end: 20150502
  6. SUINY [Concomitant]
     Active Substance: ANAGLIPTIN
     Indication: TYPE 2 DIABETES MELLITUS
     Route: 048
     Dates: end: 20150507
  7. GLIMEPIRIDE. [Concomitant]
     Active Substance: GLIMEPIRIDE
     Indication: TYPE 2 DIABETES MELLITUS
     Route: 048
     Dates: end: 20150507

REACTIONS (5)
  - Monoplegia [Unknown]
  - Cerebral artery occlusion [Unknown]
  - Ischaemic cerebral infarction [Recovered/Resolved with Sequelae]
  - Diabetes mellitus inadequate control [Unknown]
  - Cerebral artery stenosis [Unknown]

NARRATIVE: CASE EVENT DATE: 20150501
